FAERS Safety Report 5330888-1 (Version None)
Quarter: 2007Q2

REPORT INFORMATION
  Report Type: 
  Country: None (occurrence: None)
  Receive Date: 20070516
  Receipt Date: 20070504
  Transmission Date: 20071010
  Serious: Yes (Death)
  Sender: FDA-Public Use
  Company Number: MC200700377

PATIENT

DRUGS (9)
  1. ANGIOMAX [Suspect]
     Indication: HEPARIN-INDUCED THROMBOCYTOPENIA
     Dosage: SEE IMAGE
     Dates: start: 20040101, end: 20040101
  2. ANGIOMAX [Suspect]
     Indication: HEPARIN-INDUCED THROMBOCYTOPENIA
     Dosage: SEE IMAGE
     Dates: start: 20040101, end: 20040101
  3. ANGIOMAX [Suspect]
     Indication: HEPARIN-INDUCED THROMBOCYTOPENIA
     Dosage: SEE IMAGE
     Dates: start: 20040101, end: 20040101
  4. ARGATROBAN(ARGATROBAN) [Suspect]
     Indication: HEPARIN-INDUCED THROMBOCYTOPENIA
     Dosage: SEE IMAGE
     Dates: start: 20040101, end: 20040101
  5. ARGATROBAN(ARGATROBAN) [Suspect]
     Indication: HEPARIN-INDUCED THROMBOCYTOPENIA
     Dosage: SEE IMAGE
     Dates: start: 20040101, end: 20040101
  6. LEPIRUDIN(LEPIRUDIN) [Suspect]
     Indication: HEPARIN-INDUCED THROMBOCYTOPENIA
     Dosage: SEE IMAGE
     Dates: start: 20040101, end: 20040101
  7. LEPIRUDIN(LEPIRUDIN) [Suspect]
     Indication: HEPARIN-INDUCED THROMBOCYTOPENIA
     Dosage: SEE IMAGE
     Dates: start: 20040101, end: 20040101
  8. LEPIRUDIN(LEPIRUDIN) [Suspect]
     Indication: HEPARIN-INDUCED THROMBOCYTOPENIA
     Dosage: SEE IMAGE
     Dates: start: 20040101, end: 20040101
  9. HEPARIN [Concomitant]

REACTIONS (15)
  - AMPUTATION [None]
  - CEREBROVASCULAR ACCIDENT [None]
  - DEEP VEIN THROMBOSIS [None]
  - ECCHYMOSIS [None]
  - EPISTAXIS [None]
  - EYE HAEMORRHAGE [None]
  - HAEMATURIA [None]
  - HAEMOGLOBIN DECREASED [None]
  - HAEMORRHAGE [None]
  - HAEMORRHAGE INTRACRANIAL [None]
  - HEPATIC FUNCTION ABNORMAL [None]
  - MYOCARDIAL INFARCTION [None]
  - RENAL IMPAIRMENT [None]
  - RETROPERITONEAL HAEMORRHAGE [None]
  - TRANSAMINASES INCREASED [None]
